FAERS Safety Report 7788307-1 (Version None)
Quarter: 2011Q3

REPORT INFORMATION
  Report Type: 
  Country: None (occurrence: None)
  Receive Date: 20110927
  Receipt Date: 20110914
  Transmission Date: 20111222
  Serious: Yes (Life-Threatening)
  Sender: FDA-Public Use
  Company Number: 1000024074

PATIENT
  Age: 84 Year
  Sex: Female

DRUGS (7)
  1. SINGULAIR (MONTELUKAST SODIUM) (TABLETS) (MONTELUKAST SODIUM) [Concomitant]
  2. AERIUS (DESLORATADINE)(TABLETS)(DESLORATADINE) [Concomitant]
  3. BRONKYL (ACETYLCYSTEINE)(TABLETS)(ACETYLCYSTEINE) [Concomitant]
  4. ROFLUMILAST (ROFLUMILAST) (TABLETS) [Suspect]
     Indication: CHRONIC OBSTRUCTIVE PULMONARY DISEASE
     Dosage: 500 MICROGRAM (500 MCG, 1 IN 1 D),ORAL
     Route: 048
     Dates: start: 20110414, end: 20110425
  5. ATACAND PLUS(CANDESARTAN, HYDROCHLOROTHIAZIDE)(CANDESARTAN, HYDROCHLOR [Concomitant]
  6. BUDESONIDE/FORMOTEROL (BUDESONIDE, FORMOTEROL)(BUDESONIDE, FORMOTEROL) [Concomitant]
  7. NUELIN DEPOT (THEOPHYLLINE)(TABLETS)(THEOPHYLLINE) [Concomitant]

REACTIONS (2)
  - SUICIDAL IDEATION [None]
  - FEELING OF BODY TEMPERATURE CHANGE [None]
